FAERS Safety Report 5268979-6 (Version None)
Quarter: 2007Q1

REPORT INFORMATION
  Report Type: 
  Country: None (occurrence: None)
  Receive Date: 20070319
  Receipt Date: 20070308
  Transmission Date: 20070707
  Serious: Yes (Hospitalization)
  Sender: FDA-Public Use
  Company Number: FR-JNJFOC-20070302281

PATIENT
  Sex: Female
  Weight: 90 kg

DRUGS (12)
  1. IMODIUM [Suspect]
     Indication: OFF LABEL USE
     Route: 048
  2. IMODIUM [Suspect]
     Indication: INFLUENZA
     Route: 048
  3. TITANOREINE [Suspect]
     Indication: INFLUENZA
     Route: 054
  4. EUPANTOL [Suspect]
     Indication: INFLUENZA
  5. BISOLVON [Suspect]
     Indication: INFLUENZA
     Route: 048
  6. ALUMINUM HYDROXIDE AND MAGNESIUM TRISILICATE [Suspect]
     Indication: INFLUENZA
     Route: 048
  7. IRBESARTAN [Concomitant]
  8. DETENSIEL [Concomitant]
  9. EUPRESSYL [Concomitant]
  10. ALDACTAZINE [Concomitant]
  11. PAROXETINE HCL [Concomitant]
  12. LERCAN [Concomitant]
     Route: 065

REACTIONS (3)
  - RASH ERYTHEMATOUS [None]
  - RASH PUSTULAR [None]
  - TOXIC SKIN ERUPTION [None]
